FAERS Safety Report 5068697-3 (Version None)
Quarter: 2006Q3

REPORT INFORMATION
  Report Type: 
  Country: None (occurrence: None)
  Receive Date: 20060802
  Receipt Date: 20060217
  Transmission Date: 20061208
  Serious: No
  Sender: FDA-Public Use
  Company Number: US-BRISTOL-MYERS SQUIBB COMPANY-13287602

PATIENT
  Sex: Male
  Weight: 103 kg

DRUGS (2)
  1. COUMADIN [Suspect]
     Indication: HAEMORRHAGIC STROKE
     Dosage: 5 MG 5 DAYS WEEKLY + 7.5 MG 2 DAYS WEEKLY
     Dates: start: 20051001
  2. REGULAR INSULIN [Concomitant]

REACTIONS (2)
  - HAEMORRHAGE [None]
  - INTERNATIONAL NORMALISED RATIO DECREASED [None]
